FAERS Safety Report 20846168 (Version 4)
Quarter: 2022Q3

REPORT INFORMATION
  Report Type: Spontaneous
  Country: US (occurrence: US)
  Receive Date: 20220518
  Receipt Date: 20220705
  Transmission Date: 20221027
  Serious: Yes (Other)
  Sender: FDA-Public Use
  Company Number: US-PFIZER INC-202200712181

PATIENT
  Age: 88 Year
  Sex: Female

DRUGS (1)
  1. PAXLOVID [Suspect]
     Active Substance: NIRMATRELVIR\RITONAVIR
     Indication: COVID-19 treatment
     Dosage: [PF-07321332 300 MG]/[RITONAVIR 100 MG]; 2X/DAY
     Route: 048
     Dates: start: 20220512

REACTIONS (5)
  - Cough [Recovered/Resolved]
  - Muscle spasms [Recovered/Resolved]
  - Dysgeusia [Unknown]
  - Choking sensation [Unknown]
  - Taste disorder [Unknown]

NARRATIVE: CASE EVENT DATE: 20220512
